FAERS Safety Report 7083597-5 (Version None)
Quarter: 2010Q4

REPORT INFORMATION
  Report Type: 
  Country: None (occurrence: None)
  Receive Date: 20101104
  Receipt Date: 20101027
  Transmission Date: 20110411
  Serious: Yes (Other)
  Sender: FDA-Public Use
  Company Number: FR-B.I. PHARMACEUTICALS,INC./RIDGEFIELD-2010-FF-00873FF

PATIENT
  Age: 79 Year
  Sex: Female

DRUGS (14)
  1. PRADAXA [Suspect]
     Indication: SURGERY
     Dosage: 150 MG
     Route: 048
     Dates: start: 20100930, end: 20101015
  2. NEXIUM [Suspect]
     Route: 048
  3. RASILEZ [Concomitant]
     Dosage: 300 MG
  4. IXPRIM [Concomitant]
     Dosage: 6 G
  5. FOLIC ACID [Concomitant]
     Dosage: 15 MG
  6. KARDEGIC [Concomitant]
     Dosage: 75 MG
  7. BETA-HISTINE [Concomitant]
     Dosage: 48 MG
  8. DIFFU K [Concomitant]
     Dosage: 600 MG
  9. TARDYFERON [Concomitant]
     Dosage: 160 MG
  10. FENOFIBRATE [Concomitant]
  11. TENORETIC 100 [Concomitant]
  12. VASTAREL LP [Concomitant]
     Dosage: 35 ML
  13. IMOVANE [Concomitant]
     Dosage: 1/2 TABLET DAILY
  14. ZYLORIC [Concomitant]
     Dosage: 100 MG

REACTIONS (2)
  - DRUG INTERACTION [None]
  - THROMBOPHLEBITIS [None]
